FAERS Safety Report 6431003-3 (Version None)
Quarter: 2009Q4

REPORT INFORMATION
  Report Type: 
  Country: None (occurrence: None)
  Receive Date: 20091106
  Receipt Date: 20091102
  Transmission Date: 20100525
  Serious: Yes (Death)
  Sender: FDA-Public Use
  Company Number: SI-GENENTECH-293196

PATIENT
  Sex: Male

DRUGS (6)
  1. ACTIVASE [Suspect]
     Indication: ISCHAEMIC STROKE
     Dosage: 50 MG, UNK
     Route: 042
     Dates: start: 20091012, end: 20091012
  2. DIAPREL [Concomitant]
     Indication: DIABETES MELLITUS
     Dosage: UNK
  3. GLUCOBAY [Concomitant]
     Indication: DIABETES MELLITUS
     Dosage: UNK
  4. ENAP [Concomitant]
     Indication: HYPERTENSION
     Dosage: UNK
  5. OMNIC [Concomitant]
     Indication: DRUG USE FOR UNKNOWN INDICATION
     Dosage: UNK
  6. ADALAT [Concomitant]
     Indication: HYPERTENSION
     Dosage: UNK

REACTIONS (2)
  - COMA [None]
  - ISCHAEMIC STROKE [None]
